FAERS Safety Report 6218257-3 (Version None)
Quarter: 2009Q2

REPORT INFORMATION
  Report Type: 
  Country: None (occurrence: None)
  Receive Date: 20090608
  Receipt Date: 20090526
  Transmission Date: 20091009
  Serious: Yes (Hospitalization)
  Sender: FDA-Public Use
  Company Number: US-BIOGENIDEC-2009BI001748

PATIENT
  Age: 56 Year
  Sex: Male

DRUGS (3)
  1. AVONEX [Suspect]
     Indication: MULTIPLE SCLEROSIS
     Route: 030
     Dates: start: 20040501, end: 20060901
  2. AVONEX [Suspect]
     Route: 030
     Dates: start: 20070101
  3. AVONEX [Suspect]
     Route: 030
     Dates: start: 19960501, end: 20040101

REACTIONS (1)
  - CEREBRAL INFARCTION [None]
